FAERS Safety Report 10560435 (Version 1)
Quarter: 2014Q4

REPORT INFORMATION
  Report Type: Other
  Country: US (occurrence: US)
  Receive Date: 20141103
  Receipt Date: 20141103
  Transmission Date: 20150529
  Serious: Yes (Hospitalization)
  Sender: FDA-Public Use
  Company Number: US-SUCAMPO AG-SPI201400785

PATIENT

DRUGS (2)
  1. MIRALAX [Concomitant]
     Active Substance: POLYETHYLENE GLYCOL 3350
  2. AMITIZA [Suspect]
     Active Substance: LUBIPROSTONE

REACTIONS (2)
  - Heart rate increased [Unknown]
  - Gastroenteritis [Unknown]
